FAERS Safety Report 4395640-2 (Version None)
Quarter: 2004Q3

REPORT INFORMATION
  Report Type: 
  Country: None (occurrence: None)
  Receive Date: 20040709
  Receipt Date: 20040701
  Transmission Date: 20050211
  Serious: Yes (Death)
  Sender: FDA-Public Use
  Company Number: US-JNJFOC-20040602214

PATIENT
  Age: 66 Year
  Sex: Male

DRUGS (1)
  1. SPORANOX [Suspect]
     Indication: BLASTOMYCOSIS
     Dosage: 200 MG, 2 IN 1 DAY, ORAL
     Route: 048
     Dates: start: 20031101

REACTIONS (1)
  - TREATMENT NONCOMPLIANCE [None]
